FAERS Safety Report 7151427-9 (Version None)
Quarter: 2010Q4

REPORT INFORMATION
  Report Type: 
  Country: None (occurrence: None)
  Receive Date: 20101123
  Receipt Date: 20101110
  Transmission Date: 20110411
  Serious: Yes (Hospitalization)
  Sender: FDA-Public Use
  Company Number: TCI2010A05108

PATIENT
  Age: 71 Year
  Sex: Male

DRUGS (7)
  1. ACTOS [Suspect]
     Indication: TYPE 2 DIABETES MELLITUS
     Dosage: 15 MG (15 MG, 1 D), PER ORAL
     Route: 048
     Dates: start: 20100205
  2. LANSOPRAZOLE [Concomitant]
  3. AMARYL [Concomitant]
  4. ACETYLSALICYLIC ACID [Concomitant]
  5. MAGLAX (MAGNESIUM OXIDE) [Concomitant]
  6. COTRIM [Concomitant]
  7. PREDONINE (PREDNISOLONE) [Concomitant]

REACTIONS (1)
  - LYMPHOMA [None]
